FAERS Safety Report 17911117 (Version 3)
Quarter: 2021Q3

REPORT INFORMATION
  Report Type: Spontaneous
  Country: US (occurrence: US)
  Receive Date: 20200618
  Receipt Date: 20210702
  Transmission Date: 20211014
  Serious: Yes (Death, Other)
  Sender: FDA-Public Use
  Company Number: US-SA-2020SA155385

PATIENT
  Age: 55 Year
  Sex: Male

DRUGS (3)
  1. ZANTAC [Suspect]
     Active Substance: RANITIDINE HYDROCHLORIDE
     Indication: GASTROOESOPHAGEAL REFLUX DISEASE
  2. ZANTAC [Suspect]
     Active Substance: RANITIDINE HYDROCHLORIDE
     Indication: GASTRIC ULCER
  3. ZANTAC [Suspect]
     Active Substance: RANITIDINE HYDROCHLORIDE
     Indication: DYSPEPSIA
     Dosage: 150 MG, QD
     Dates: start: 199910, end: 201806

REACTIONS (6)
  - Oesophageal carcinoma [Fatal]
  - Brain neoplasm malignant [Fatal]
  - Lung carcinoma cell type unspecified stage III [Fatal]
  - Renal disorder [Fatal]
  - Hepatic cancer [Fatal]
  - Renal cancer [Fatal]

NARRATIVE: CASE EVENT DATE: 201609
